FAERS Safety Report 21067104 (Version 2)
Quarter: 2022Q3

REPORT INFORMATION
  Report Type: Spontaneous
  Country: US (occurrence: US)
  Receive Date: 20220712
  Receipt Date: 20220928
  Transmission Date: 20221027
  Serious: No
  Sender: FDA-Public Use
  Company Number: US-BRISTOL-MYERS SQUIBB COMPANY-2022-059744

PATIENT
  Age: 35 Year
  Sex: Female

DRUGS (5)
  1. THALOMID [Suspect]
     Active Substance: THALIDOMIDE
     Indication: Plasma cell myeloma
     Route: 048
     Dates: start: 202205
  2. ABILIFY [Concomitant]
     Active Substance: ARIPIPRAZOLE
     Indication: Product used for unknown indication
     Route: 048
     Dates: start: 20220606
  3. XANAX [Concomitant]
     Active Substance: ALPRAZOLAM
     Indication: Product used for unknown indication
     Route: 048
     Dates: start: 20220606
  4. ZOLOFT [Concomitant]
     Active Substance: SERTRALINE HYDROCHLORIDE
     Indication: Product used for unknown indication
     Route: 048
     Dates: start: 20220606
  5. GANIN [GABAPENTIN] [Concomitant]
     Indication: Product used for unknown indication
     Route: 048
     Dates: start: 20220510

REACTIONS (2)
  - Off label use [Unknown]
  - Malaise [Unknown]

NARRATIVE: CASE EVENT DATE: 20220501
